FAERS Safety Report 6419370-8 (Version None)
Quarter: 2009Q4

REPORT INFORMATION
  Report Type: 
  Country: None (occurrence: None)
  Receive Date: 20091013
  Receipt Date: 20090728
  Transmission Date: 20100525
  Serious: Yes (Hospitalization)
  Sender: FDA-Public Use
  Company Number: 1000007706

PATIENT
  Age: 61 Year
  Sex: Female

DRUGS (5)
  1. LEXAPRO [Suspect]
     Indication: DEPRESSION
     Dosage: 5 MG (5 MG, 1 IN 1 D), ORAL
     Route: 048
  2. LAMICTAL [Concomitant]
  3. CLONAZEPAM [Concomitant]
  4. PRAVACHOL [Concomitant]
  5. ZETIA [Concomitant]

REACTIONS (5)
  - AGITATION [None]
  - DEPRESSION [None]
  - HEADACHE [None]
  - INSOMNIA [None]
  - NAUSEA [None]
